FAERS Safety Report 18869184 (Version 1)
Quarter: 2021Q1

REPORT INFORMATION
  Report Type: Spontaneous
  Country: FR (occurrence: FR)
  Receive Date: 20210209
  Receipt Date: 20210209
  Transmission Date: 20210420
  Serious: Yes (Congenital Anomaly)
  Sender: FDA-Public Use
  Company Number: NVSC2021FR024322

PATIENT
  Age: 1 Day
  Sex: Male

DRUGS (2)
  1. LEVOTHYROX [Suspect]
     Active Substance: LEVOTHYROXINE
     Indication: FOETAL EXPOSURE DURING PREGNANCY
     Dosage: 100 UG
     Route: 064
  2. HYDROCORTISONE. [Suspect]
     Active Substance: HYDROCORTISONE
     Indication: FOETAL EXPOSURE DURING PREGNANCY
     Dosage: 20 G
     Route: 064

REACTIONS (4)
  - Hirsutism [Not Recovered/Not Resolved]
  - Congenital adrenal gland hypoplasia [Not Recovered/Not Resolved]
  - Cleft palate [Not Recovered/Not Resolved]
  - Retrognathia [Not Recovered/Not Resolved]
